FAERS Safety Report 6046971-1 (Version None)
Quarter: 2009Q1

REPORT INFORMATION
  Report Type: 
  Country: None (occurrence: None)
  Receive Date: 20090122
  Receipt Date: 20090119
  Transmission Date: 20090719
  Serious: Yes (Hospitalization)
  Sender: FDA-Public Use
  Company Number: FR-BRISTOL-MYERS SQUIBB COMPANY-14476089

PATIENT
  Age: 66 Year
  Sex: Male
  Weight: 48 kg

DRUGS (11)
  1. APROVEL FILM-COATED TABS 150 MG [Suspect]
     Indication: PROTEINURIA
     Dosage: 1 DF= 1 TABLET
     Route: 048
  2. ENALAPRIL [Suspect]
     Route: 048
  3. TAHOR [Concomitant]
     Dosage: 1 TABLET
  4. KARDEGIC [Concomitant]
     Dosage: 1 TABLET
  5. LASILIX [Concomitant]
     Dosage: 1 TABLET,
  6. SPECIAFOLDINE [Concomitant]
  7. KAYEXALATE [Concomitant]
  8. CALCIDIA [Concomitant]
  9. SPIRIVA [Concomitant]
     Dosage: 1 CAPSULE
  10. SALMETEROL + FLUTICASONE [Concomitant]
  11. VENTOLIN [Concomitant]

REACTIONS (3)
  - DYSPNOEA [None]
  - OEDEMA PERIPHERAL [None]
  - RENAL FAILURE ACUTE [None]
